FAERS Safety Report 7288564-4 (Version None)
Quarter: 2011Q1

REPORT INFORMATION
  Report Type: 
  Country: None (occurrence: None)
  Receive Date: 20110211
  Receipt Date: 20110131
  Transmission Date: 20110831
  Serious: Yes (Other)
  Sender: FDA-Public Use
  Company Number: SE-JNJFOC-20110201683

PATIENT
  Age: 57 Year
  Sex: Female
  Weight: 50 kg

DRUGS (3)
  1. ALENDRONATE SODIUM [Concomitant]
     Indication: OSTEOPOROSIS
     Route: 048
  2. IMODIUM [Suspect]
     Indication: DIARRHOEA
     Dosage: TOOK TWO TABLETS AT THE SAME TIME
     Route: 048
  3. ERGENYL [Concomitant]
     Indication: EPILEPSY
     Route: 048

REACTIONS (3)
  - PANIC DISORDER [None]
  - PRODUCT QUALITY ISSUE [None]
  - SENSORY LOSS [None]
